FAERS Safety Report 7164520-1 (Version None)
Quarter: 2010Q4

REPORT INFORMATION
  Report Type: 
  Country: None (occurrence: None)
  Receive Date: 20101215
  Receipt Date: 20101206
  Transmission Date: 20110411
  Serious: Yes (Hospitalization)
  Sender: FDA-Public Use
  Company Number: JP-ASTRAZENECA-2010SE52011

PATIENT
  Age: 28 Year
  Sex: Male
  Weight: 70 kg

DRUGS (13)
  1. SEROQUEL [Suspect]
     Indication: SCHIZOPHRENIA
     Route: 048
     Dates: end: 20101018
  2. SEROQUEL [Suspect]
     Indication: DEPRESSION
     Route: 048
     Dates: end: 20101018
  3. SEROQUEL [Suspect]
     Dosage: 2000 MG ONCE/SINGLE ADMINISTRATION
     Route: 048
     Dates: start: 20101019, end: 20101019
  4. SEROQUEL [Suspect]
     Dosage: 2000 MG ONCE/SINGLE ADMINISTRATION
     Route: 048
     Dates: start: 20101019, end: 20101019
  5. TASMOLIN [Suspect]
     Indication: SCHIZOPHRENIA
     Route: 048
     Dates: start: 20101019, end: 20101019
  6. TASMOLIN [Suspect]
     Indication: DEPRESSION
     Route: 048
     Dates: start: 20101019, end: 20101019
  7. ABILIFY [Suspect]
     Indication: SCHIZOPHRENIA
     Route: 048
     Dates: start: 20101019, end: 20101019
  8. ABILIFY [Suspect]
     Indication: DEPRESSION
     Route: 048
     Dates: start: 20101019, end: 20101019
  9. DEPAS [Suspect]
     Indication: SCHIZOPHRENIA
     Route: 048
     Dates: start: 20101019, end: 20101019
  10. DEPAS [Suspect]
     Indication: DEPRESSION
     Route: 048
     Dates: start: 20101019, end: 20101019
  11. BENZALIN [Suspect]
     Indication: SCHIZOPHRENIA
     Route: 048
     Dates: start: 20101019, end: 20101019
  12. BENZALIN [Suspect]
     Indication: DEPRESSION
     Route: 048
     Dates: start: 20101019, end: 20101019
  13. AKINETON [Concomitant]
     Route: 048
     Dates: end: 20101019

REACTIONS (4)
  - COMA [None]
  - INTENTIONAL OVERDOSE [None]
  - MIOSIS [None]
  - SUICIDE ATTEMPT [None]
